FAERS Safety Report 17412593 (Version 11)
Quarter: 2022Q1

REPORT INFORMATION
  Report Type: Report from Study
  Country: CN (occurrence: None)
  Receive Date: 20200213
  Receipt Date: 20220107
  Transmission Date: 20220424
  Serious: Yes (Hospitalization)
  Sender: FDA-Public Use
  Company Number: CN-ROCHE-2524795

PATIENT
  Age: 68 Year
  Sex: Male
  Weight: 69 kg

DRUGS (10)
  1. ATEZOLIZUMAB [Suspect]
     Active Substance: ATEZOLIZUMAB
     Indication: Non-small cell lung cancer
     Dosage: LAST DOSE OF ATEZOLIZUMAB PRIOR TO ADVERSE EVENT (HYPOTHYROIDISM) WAS GIVEN ON 25/DEC/2019?DATE OF M
     Route: 041
     Dates: start: 20190910
  2. LEUCOGEN TABLETS [Concomitant]
     Dates: start: 20200127, end: 20200205
  3. LANSOPRAZOLE [Concomitant]
     Active Substance: LANSOPRAZOLE
     Dates: start: 20200205, end: 20200212
  4. EGG PHOSPHOLIPIDS\GLYCERIN\SOYBEAN OIL [Concomitant]
     Active Substance: EGG PHOSPHOLIPIDS\GLYCERIN\SOYBEAN OIL
     Dates: start: 20200205, end: 20200213
  5. OPRELVEKIN [Concomitant]
     Active Substance: OPRELVEKIN
     Dates: start: 20200205, end: 20200206
  6. SODIUM BICARBONATE [Concomitant]
     Active Substance: SODIUM BICARBONATE
     Dates: start: 20200206, end: 20200213
  7. FUROSEMIDE [Concomitant]
     Active Substance: FUROSEMIDE
     Dates: start: 20200205, end: 20200205
  8. LIDOCAINE HYDROCHLORIDE [Concomitant]
     Active Substance: LIDOCAINE HYDROCHLORIDE
     Dates: start: 20200205, end: 20200205
  9. POTASSIUM CHLORIDE [Concomitant]
     Active Substance: POTASSIUM CHLORIDE
     Dates: start: 20200211
  10. THROMBOPOIETIN [Concomitant]
     Active Substance: THROMBOPOIETIN
     Dosage: 15000 UNIT
     Dates: start: 20200211

REACTIONS (5)
  - Pleural effusion [Not Recovered/Not Resolved]
  - Pneumonia [Recovered/Resolved]
  - Cardiac ventricular thrombosis [Not Recovered/Not Resolved]
  - Hypothyroidism [Not Recovered/Not Resolved]
  - Atrial fibrillation [Recovered/Resolved]

NARRATIVE: CASE EVENT DATE: 20200113
